FAERS Safety Report 10173700 (Version 2)
Quarter: 2014Q2

REPORT INFORMATION
  Report Type: Spontaneous
  Country: KR (occurrence: KR)
  Receive Date: 20140515
  Receipt Date: 20140515
  Transmission Date: 20141212
  Serious: Yes (Other)
  Sender: FDA-Public Use
  Company Number: KR-ASTELLAS-2014JP002276

PATIENT
  Age: 68 Year
  Sex: Male

DRUGS (1)
  1. PROTOPIC [Suspect]
     Indication: ECZEMA
     Dosage: 0.03 %, UNK
     Route: 061
     Dates: start: 20140304

REACTIONS (4)
  - Application site erythema [Recovered/Resolved]
  - Application site pruritus [Recovered/Resolved]
  - Application site pain [Recovered/Resolved]
  - Off label use [Recovered/Resolved]
